FAERS Safety Report 4543837-0 (Version None)
Quarter: 2005Q1

REPORT INFORMATION
  Report Type: 
  Country: None (occurrence: None)
  Receive Date: 20050103
  Receipt Date: 20031201
  Transmission Date: 20050727
  Serious: Yes (Hospitalization, Other)
  Sender: FDA-Public Use
  Company Number: GXKR2003DE00551

PATIENT
  Age: 74 Year
  Sex: Male

DRUGS (8)
  1. CIPROFLOXACIN (NGX) (CIPROFLOXACIN) UNKNOWN [Suspect]
     Indication: PNEUMONIA
     Dosage: 400 MG, INTRAVENOUS
     Route: 042
  2. MUCOSOLVAN (AMBROXOL HYDROCHLORIDE) [Concomitant]
  3. NOVODILGAL [Concomitant]
  4. METOCLOPRAMIDE HYDROCHLORIDE [Concomitant]
  5. LASIX [Concomitant]
  6. CATEPRESAN [Concomitant]
  7. ADALAT [Concomitant]
  8. NEPRESOL (DIHYDRALAZINE MESILATE) [Concomitant]

REACTIONS (7)
  - ACTIVATED PARTIAL THROMBOPLASTIN TIME PROLONGED [None]
  - ANTIPHOSPHOLIPID ANTIBODIES POSITIVE [None]
  - FACTOR V INHIBITION [None]
  - HAEMOGLOBIN DECREASED [None]
  - MUSCLE HAEMORRHAGE [None]
  - OVERDOSE [None]
  - PROTHROMBIN TIME SHORTENED [None]
